FAERS Safety Report 12374746 (Version 2)
Quarter: 2016Q2

REPORT INFORMATION
  Report Type: Spontaneous
  Country: US (occurrence: US)
  Receive Date: 20160517
  Receipt Date: 20160531
  Transmission Date: 20160815
  Serious: No
  Sender: FDA-Public Use
  Company Number: US-PFIZER INC-2016259893

PATIENT
  Age: 55 Year
  Sex: Female
  Weight: 73 kg

DRUGS (3)
  1. EFFEXOR XR [Suspect]
     Active Substance: VENLAFAXINE HYDROCHLORIDE
     Dosage: 150 MG, UNK
     Route: 048
  2. EFFEXOR XR [Suspect]
     Active Substance: VENLAFAXINE HYDROCHLORIDE
     Indication: SEASONAL AFFECTIVE DISORDER
     Dosage: 150 MG, 2X/DAY
     Route: 048
  3. XANAX [Concomitant]
     Active Substance: ALPRAZOLAM
     Indication: ANXIETY
     Dosage: 0.5 MG, AS NEEDED
     Route: 048
     Dates: start: 2006

REACTIONS (2)
  - Drug ineffective [Unknown]
  - Vitamin D decreased [Unknown]

NARRATIVE: CASE EVENT DATE: 201512
